FAERS Safety Report 9026202 (Version 1)
Quarter: 2012Q4

REPORT INFORMATION
  Report Type: Spontaneous
  Country: US (occurrence: None)
  Receive Date: 20121211
  Receipt Date: 20121211
  Transmission Date: 20130627
  Serious: Yes (Hospitalization)
  Sender: FDA-Public Use
  Company Number: None

PATIENT
  Age: 64 Year
  Sex: Female
  Weight: 68.95 kg

DRUGS (2)
  1. ATELVIA [Suspect]
     Indication: OSTEOPENIA
     Dates: start: 201209, end: 201210
  2. ATELVIA [Suspect]
     Indication: STRESS FRACTURE
     Dates: start: 201209, end: 201210

REACTIONS (7)
  - Diarrhoea [None]
  - Dehydration [None]
  - Headache [None]
  - Nausea [None]
  - Vomiting [None]
  - Muscle spasms [None]
  - Impaired work ability [None]
